FAERS Safety Report 23080187 (Version 1)
Quarter: 2023Q4

REPORT INFORMATION
  Report Type: Spontaneous
  Country: US (occurrence: None)
  Receive Date: 20231018
  Receipt Date: 20231018
  Transmission Date: 20240110
  Serious: No
  Sender: FDA-Public Use
  Company Number: None

PATIENT
  Age: 71 Year
  Sex: Female
  Weight: 54.45 kg

DRUGS (2)
  1. REVLIMID [Suspect]
     Active Substance: LENALIDOMIDE
     Indication: Plasma cell myeloma
     Dates: start: 20220801
  2. REVLIMID [Concomitant]
     Active Substance: LENALIDOMIDE
     Dates: start: 20220801

REACTIONS (3)
  - Thrombocytopenia [None]
  - Neutropenia [None]
  - Therapy change [None]

NARRATIVE: CASE EVENT DATE: 20231017
